FAERS Safety Report 9393475 (Version 2)
Quarter: 2013Q3

REPORT INFORMATION
  Report Type: Spontaneous
  Country: FR (occurrence: FR)
  Receive Date: 20130710
  Receipt Date: 20130717
  Transmission Date: 20140515
  Serious: Yes (Life-Threatening, Hospitalization)
  Sender: FDA-Public Use
  Company Number: PHHY2013FR070451

PATIENT
  Age: 63 Year
  Sex: Male
  Weight: 92 kg

DRUGS (9)
  1. HEPARIN [Suspect]
     Indication: PROPHYLAXIS
     Dosage: 3000 IU, UNK
  2. HEPARIN [Interacting]
     Dosage: 5000 IU, UNK
  3. HEPARIN [Interacting]
     Dosage: 1500 IU/H, UNK
  4. ENOXAPARIN SODIUM [Interacting]
     Dosage: 6000 IU, BID
     Route: 058
  5. FONDAPARINUX SODIUM [Interacting]
     Dosage: 7.5 MG, QD
  6. FLUINDIONE [Concomitant]
     Indication: ATRIAL FIBRILLATION
     Dosage: 20 MG, DAILY
  7. FLUINDIONE [Concomitant]
     Dosage: 40 MG, DAILY
     Route: 048
  8. LOSARTAN HCT [Concomitant]
     Indication: HYPERTENSION
  9. LANSOPRAZOLE [Concomitant]
     Dosage: 30 MG, UNK

REACTIONS (13)
  - Pulmonary embolism [Recovering/Resolving]
  - Chest pain [Unknown]
  - Cough [Unknown]
  - Dyspnoea [Recovering/Resolving]
  - Tachycardia [Unknown]
  - Rales [Unknown]
  - Pulmonary infarction [Unknown]
  - Heparin-induced thrombocytopenia [Recovering/Resolving]
  - Deep vein thrombosis [Recovering/Resolving]
  - Swelling [Unknown]
  - Pain in extremity [Unknown]
  - Drug hypersensitivity [Unknown]
  - Drug interaction [Unknown]
